FAERS Safety Report 5996035-8 (Version None)
Quarter: 2008Q4

REPORT INFORMATION
  Report Type: 
  Country: None (occurrence: None)
  Receive Date: 20081212
  Receipt Date: 20081205
  Transmission Date: 20090506
  Serious: Yes (Hospitalization)
  Sender: FDA-Public Use
  Company Number: DE-ABBOTT-08P-062-0491273-00

PATIENT
  Sex: Female
  Weight: 90 kg

DRUGS (2)
  1. HUMIRA [Suspect]
     Indication: PSORIATIC ARTHROPATHY
     Route: 058
     Dates: start: 20071101
  2. VALORON N [Concomitant]
     Indication: PAIN
     Dosage: IF NECESSARY
     Route: 048

REACTIONS (4)
  - DRUG INEFFECTIVE [None]
  - INFECTION [None]
  - MUSCULOSKELETAL PAIN [None]
  - PSORIATIC ARTHROPATHY [None]
